FAERS Safety Report 16363217 (Version 1)
Quarter: 2019Q3

REPORT INFORMATION
  Report Type: Spontaneous
  Country: US (occurrence: US)
  Receive Date: 20190527
  Receipt Date: 20190527
  Transmission Date: 20191004
  Serious: Yes (Hospitalization)
  Sender: FDA-Public Use
  Company Number: None

PATIENT
  Sex: Female

DRUGS (6)
  1. CRESTOR TAB 10MG [Concomitant]
     Dates: start: 20190211
  2. SPRYCEL [Suspect]
     Active Substance: DASATINIB
     Indication: CHRONIC MYELOID LEUKAEMIA
     Route: 048
  3. CARVEDILOL TAB 6.25MG [Concomitant]
     Active Substance: CARVEDILOL
     Dates: start: 20190211
  4. MOMETASONE SPR 50MCG [Concomitant]
     Dates: start: 20190211
  5. ASPIRIN LOW TAB 81MG EC [Concomitant]
     Dates: start: 20190211
  6. TEMAZEPAM CAP 15MG [Concomitant]
     Dates: start: 20190211

REACTIONS (4)
  - Pulmonary oedema [None]
  - Dysgeusia [None]
  - Chest discomfort [None]
  - Nausea [None]
